FAERS Safety Report 10559043 (Version 2)
Quarter: 2014Q4

REPORT INFORMATION
  Report Type: Report from Study
  Country: US (occurrence: US)
  Receive Date: 20141103
  Receipt Date: 20141114
  Transmission Date: 20150529
  Serious: No
  Sender: FDA-Public Use
  Company Number: US-AMGEN INC.-USASL2014083552

PATIENT
  Age: 77 Year
  Sex: Female

DRUGS (2)
  1. ENBREL [Suspect]
     Active Substance: ETANERCEPT
     Indication: RHEUMATOID ARTHRITIS
     Dosage: 50 MG, QWK
     Route: 058
     Dates: start: 20111101
  2. ENBREL [Suspect]
     Active Substance: ETANERCEPT
     Indication: PSORIASIS

REACTIONS (4)
  - Injection site swelling [Unknown]
  - Injection site pruritus [Unknown]
  - Injection site erythema [Unknown]
  - Injection site reaction [Unknown]

NARRATIVE: CASE EVENT DATE: 20141020
